FAERS Safety Report 13451978 (Version 2)
Quarter: 2017Q2

REPORT INFORMATION
  Report Type: Spontaneous
  Country: US (occurrence: US)
  Receive Date: 20170418
  Receipt Date: 20170508
  Transmission Date: 20170830
  Serious: Yes (Hospitalization)
  Sender: FDA-Public Use
  Company Number: US-MALLINCKRODT-T201701477

PATIENT
  Age: 17 Year
  Sex: Male
  Weight: 15 kg

DRUGS (1)
  1. GABLOFEN [Suspect]
     Active Substance: BACLOFEN
     Indication: MUSCLE SPASTICITY
     Dosage: 507.9 MCG/DAY
     Route: 037

REACTIONS (4)
  - Implant site erosion [Recovered/Resolved]
  - Wound dehiscence [Recovered/Resolved]
  - Staphylococcal infection [Recovered/Resolved]
  - Wound drainage [Recovered/Resolved]

NARRATIVE: CASE EVENT DATE: 20160826
